FAERS Safety Report 9123479 (Version 7)
Quarter: 2014Q3

REPORT INFORMATION
  Report Type: Spontaneous
  Country: US (occurrence: US)
  Receive Date: 20130227
  Receipt Date: 20140820
  Transmission Date: 20150326
  Serious: Yes (Other)
  Sender: FDA-Public Use
  Company Number: US-PFIZER INC-2013067236

PATIENT
  Age: 64 Year
  Sex: Female
  Weight: 72.11 kg

DRUGS (7)
  1. ESTRADIOL. [Concomitant]
     Active Substance: ESTRADIOL
     Dosage: 7.5, EVERY 3 WEEKS
  2. NORVASC [Suspect]
     Active Substance: AMLODIPINE BESYLATE
     Indication: HYPERTENSION
     Dosage: 2.5 MG, 1X/DAY
     Route: 048
     Dates: start: 201205
  3. ACETYLSALICYLIC ACID [Concomitant]
     Active Substance: ASPIRIN
     Dosage: UNK
  4. AMLODIPINE BESILATE [Suspect]
     Active Substance: AMLODIPINE BESYLATE
     Dosage: UNK
  5. NORVASC [Concomitant]
     Active Substance: AMLODIPINE BESYLATE
     Indication: HYPERTENSION
     Dosage: 2.5 MG, 2X/DAY
     Dates: start: 2004
  6. ALPRAZOLAM. [Concomitant]
     Active Substance: ALPRAZOLAM
     Indication: ANXIETY
     Dosage: 1 MG, 3X/DAY
  7. HYDROCHLOROTHIAZIDE WITH TRIAMTERENE [Concomitant]
     Active Substance: HYDROCHLOROTHIAZIDE\TRIAMTERENE
     Dosage: UNK (HYDROCHLOROTHIAZIDE 25MG/TRIAMTERENE 37.5MG), 1X/DAY

REACTIONS (14)
  - Product quality issue [Unknown]
  - Chest discomfort [Unknown]
  - Dyspepsia [Unknown]
  - Gastric disorder [Unknown]
  - Delusion [Unknown]
  - Malaise [Unknown]
  - Weight decreased [Unknown]
  - Restlessness [Unknown]
  - Throat tightness [Unknown]
  - Dysgeusia [Unknown]
  - Drug intolerance [Unknown]
  - Back pain [Unknown]
  - Mania [Unknown]
  - Tooth erosion [Unknown]

NARRATIVE: CASE EVENT DATE: 20130219
